FAERS Safety Report 14944722 (Version 1)
Quarter: 2018Q2

REPORT INFORMATION
  Report Type: Report from Study
  Country: None (occurrence: BR)
  Receive Date: 20180529
  Receipt Date: 20180529
  Transmission Date: 20180711
  Serious: Yes (Other)
  Sender: FDA-Public Use
  Company Number: BR-ABBVIE-18P-020-2369665-00

PATIENT
  Sex: Male
  Weight: 83 kg

DRUGS (2)
  1. CALCIUM [Concomitant]
     Active Substance: CALCIUM
     Indication: PRODUCT USED FOR UNKNOWN INDICATION
     Dosage: PATIENT USED IT WHEN HE PERFORMED THE SURGERY / PRESCRIBED BY PHYSICIAN FOR 10 DAYS
  2. SYNTHROID [Suspect]
     Active Substance: LEVOTHYROXINE SODIUM
     Indication: THYROID HORMONE REPLACEMENT THERAPY
     Route: 048
     Dates: start: 201309

REACTIONS (2)
  - Thyroid cancer [Recovering/Resolving]
  - Investigation abnormal [Unknown]
